FAERS Safety Report 8533847 (Version 3)
Quarter: 2012Q4

REPORT INFORMATION
  Report Type: Report from Study
  Country: JP (occurrence: JP)
  Receive Date: 20120427
  Receipt Date: 20120927
  Transmission Date: 20130627
  Serious: Yes (Hospitalization)
  Sender: FDA-Public Use
  Company Number: JP-JNJFOC-20120409359

PATIENT
  Age: 69 Year
  Sex: Male
  Weight: 62 kg

DRUGS (12)
  1. STELARA [Suspect]
     Indication: PSORIASIS
     Route: 058
     Dates: start: 20120831
  2. STELARA [Suspect]
     Indication: PSORIASIS
     Route: 058
     Dates: start: 20110829
  3. STELARA [Suspect]
     Indication: PSORIASIS
     Route: 058
     Dates: start: 20111219
  4. PREDNISOLONE [Suspect]
     Indication: PRODUCT USED FOR UNKNOWN INDICATION
     Route: 048
  5. ANTEBATE [Concomitant]
     Indication: PSORIASIS
     Route: 061
  6. NERISONA [Concomitant]
     Indication: PSORIASIS
     Route: 061
  7. KINDAVATE [Concomitant]
     Indication: PSORIASIS
     Route: 061
  8. AMLODIPINE [Concomitant]
     Indication: PRODUCT USED FOR UNKNOWN INDICATION
     Route: 048
  9. PARIET [Concomitant]
     Indication: OFF LABEL USE
     Route: 048
  10. ENALAPRIL [Concomitant]
     Indication: OFF LABEL USE
     Route: 048
  11. ALLEGRA [Concomitant]
     Indication: PSORIASIS
     Route: 048
  12. D-ALFA [Concomitant]
     Indication: PROPHYLAXIS
     Route: 048

REACTIONS (1)
  - Pneumonia [Recovered/Resolved]
